FAERS Safety Report 6667278-5 (Version None)
Quarter: 2010Q2

REPORT INFORMATION
  Report Type: 
  Country: None (occurrence: None)
  Receive Date: 20100401
  Receipt Date: 20100401
  Transmission Date: 20101027
  Serious: Yes (Hospitalization)
  Sender: FDA-Public Use
  Company Number: None

PATIENT
  Age: 67 Year
  Sex: Female
  Weight: 83 kg

DRUGS (1)
  1. BEVACIZUMAB 25MG/ML INJECTION [Suspect]
     Indication: COLON CANCER
     Dosage: UNKNOWN DOSE PALLIATIVE ONCE IV
     Route: 042
     Dates: start: 20090216, end: 20090216

REACTIONS (5)
  - COLON CANCER [None]
  - CONDITION AGGRAVATED [None]
  - DEEP VEIN THROMBOSIS [None]
  - INTESTINAL OBSTRUCTION [None]
  - METASTASIS [None]
